FAERS Safety Report 15329134 (Version 2)
Quarter: 2018Q3

REPORT INFORMATION
  Report Type: Spontaneous
  Country: CZ (occurrence: CZ)
  Receive Date: 20180829
  Receipt Date: 20180908
  Transmission Date: 20181010
  Serious: Yes (Death, Hospitalization, Other)
  Sender: FDA-Public Use
  Company Number: CZ-AMGEN-CZESP2018116652

PATIENT
  Age: 59 Year
  Sex: Male

DRUGS (6)
  1. PANITUMUMAB [Suspect]
     Active Substance: PANITUMUMAB
     Indication: COLORECTAL CANCER METASTATIC
     Dosage: UNK UNK, CYCLICAL
     Route: 065
     Dates: start: 201604, end: 2016
  2. FOLINIC ACID [Suspect]
     Active Substance: LEUCOVORIN
     Indication: COLORECTAL CANCER METASTATIC
     Dosage: UNK UNK, CYCLICAL
     Route: 065
     Dates: start: 201501, end: 2016
  3. FLUOROURACIL. [Suspect]
     Active Substance: FLUOROURACIL
     Indication: COLORECTAL CANCER METASTATIC
     Dosage: UNK UNK, CYCLICAL
     Route: 065
     Dates: start: 201501, end: 2016
  4. PANITUMUMAB [Suspect]
     Active Substance: PANITUMUMAB
     Dosage: DOSE REDUCED TO 75% (FROM 4TH TO 11TH CYCLE), CYCLICAL
     Route: 065
     Dates: start: 2016, end: 2016
  5. IRINOTECAN [Suspect]
     Active Substance: IRINOTECAN
     Dosage: DOSE REDUCED TO 75% (2ND CYCLE AND (FROM 4TH TO 11TH CYCLE)), CYCLICAL
     Route: 065
     Dates: start: 2016, end: 2016
  6. IRINOTECAN [Suspect]
     Active Substance: IRINOTECAN
     Indication: COLORECTAL CANCER METASTATIC
     Dosage: UNK UNK, CYCLICAL
     Route: 065
     Dates: start: 201604, end: 2016

REACTIONS (11)
  - Stomatitis [Unknown]
  - Conjunctivitis [Unknown]
  - Epilepsy [Unknown]
  - Dehiscence [Unknown]
  - Intestinal obstruction [Unknown]
  - Diarrhoea [Unknown]
  - Colorectal cancer metastatic [Unknown]
  - Death [Fatal]
  - Leukopenia [Unknown]
  - Photophobia [Unknown]
  - General physical health deterioration [Unknown]

NARRATIVE: CASE EVENT DATE: 2016
